FAERS Safety Report 18339767 (Version 2)
Quarter: 2020Q4

REPORT INFORMATION
  Report Type: Spontaneous
  Country: US (occurrence: US)
  Receive Date: 20201002
  Receipt Date: 20201022
  Transmission Date: 20210113
  Serious: Yes (Hospitalization)
  Sender: FDA-Public Use
  Company Number: US-JNJFOC-20200939279

PATIENT
  Age: 53 Year
  Sex: Female
  Weight: 82.63 kg

DRUGS (13)
  1. QUETIAPINE. [Concomitant]
     Active Substance: QUETIAPINE
  2. RIZATRIPTAN. [Concomitant]
     Active Substance: RIZATRIPTAN
  3. EUTHYROX [Concomitant]
     Active Substance: LEVOTHYROXINE SODIUM
  4. CLONAZEPAM. [Concomitant]
     Active Substance: CLONAZEPAM
  5. MYRBETRIQ [Concomitant]
     Active Substance: MIRABEGRON
  6. SPRAVATO [Suspect]
     Active Substance: ESKETAMINE
     Indication: DEPRESSION
     Dates: start: 20200731, end: 20200731
  7. OMEPRAZOLE. [Concomitant]
     Active Substance: OMEPRAZOLE
  8. PREMPRO [Concomitant]
     Active Substance: ESTROGENS, CONJUGATED\MEDROXYPROGESTERONE ACETATE
  9. TOPIRAMATE. [Concomitant]
     Active Substance: TOPIRAMATE
  10. VENLAFAXINE [Concomitant]
     Active Substance: VENLAFAXINE HYDROCHLORIDE
  11. PRAZOSIN. [Concomitant]
     Active Substance: PRAZOSIN
  12. LINACLOTIDE [Concomitant]
     Active Substance: LINACLOTIDE
  13. SPRAVATO [Suspect]
     Active Substance: ESKETAMINE
     Dosage: 84MG, 8 TOTAL DOSES
     Dates: start: 20200807, end: 20200911

REACTIONS (2)
  - Hospitalisation [Unknown]
  - Product dose omission issue [Unknown]
